FAERS Safety Report 8541067-9 (Version None)
Quarter: 2012Q3

REPORT INFORMATION
  Report Type: 
  Country: None (occurrence: None)
  Receive Date: 20120726
  Receipt Date: 20110817
  Transmission Date: 20120928
  Serious: No
  Sender: FDA-Public Use
  Company Number: US-ASTRAZENECA-2011SE49354

PATIENT
  Age: 48 Year
  Sex: Female
  Weight: 92.9 kg

DRUGS (8)
  1. NORFLEX [Concomitant]
     Indication: ARTHRITIS
  2. TRAZODONE HCL [Concomitant]
  3. SEROQUEL [Suspect]
     Indication: SCHIZOPHRENIA
     Route: 048
  4. CELEXA [Concomitant]
  5. VISTARIL [Concomitant]
     Indication: ANXIETY
  6. XANEX [Concomitant]
  7. SEROQUEL [Suspect]
     Route: 048
     Dates: start: 20110601
  8. ADDERALL 5 [Concomitant]

REACTIONS (4)
  - WEIGHT INCREASED [None]
  - HYPOAESTHESIA [None]
  - JOINT SWELLING [None]
  - DRY MOUTH [None]
